FAERS Safety Report 11268932 (Version 1)
Quarter: 2015Q3

REPORT INFORMATION
  Report Type: Spontaneous
  Country: FR (occurrence: FR)
  Receive Date: 20150714
  Receipt Date: 20150714
  Transmission Date: 20151125
  Serious: Yes (Hospitalization, Other)
  Sender: FDA-Public Use
  Company Number: FR-ORION CORPORATION ORION PHARMA-TREX2015-0208

PATIENT
  Age: 47 Year
  Sex: Male

DRUGS (8)
  1. INEXIUM [Suspect]
     Active Substance: ESOMEPRAZOLE
     Dosage: STRENGTH: 20 MG
     Route: 065
  2. FUMAFER [Concomitant]
     Active Substance: FERROUS FUMARATE
     Route: 065
  3. VOLTARENE [Concomitant]
     Active Substance: DICLOFENAC SODIUM
     Dosage: STRENGTH: 75 MG
     Route: 065
  4. METHOTREXATE (METHOTREXATE SODIUM) [Suspect]
     Active Substance: METHOTREXATE SODIUM
     Indication: RHEUMATOID ARTHRITIS
     Dosage: STRENGTH: 10 MG
     Route: 048
     Dates: start: 201407
  5. PREDNISONE. [Concomitant]
     Active Substance: PREDNISONE
     Dosage: STRENGTH: 5 MG
     Route: 065
  6. SALAZOPYRINE [Suspect]
     Active Substance: SULFASALAZINE
     Indication: RHEUMATOID ARTHRITIS
     Dosage: STRENGTH: 500 MG
     Route: 065
     Dates: start: 201407, end: 201501
  7. PLAQUENIL [Suspect]
     Active Substance: HYDROXYCHLOROQUINE SULFATE
     Indication: RHEUMATOID ARTHRITIS
     Route: 065
     Dates: start: 201407, end: 20150107
  8. SPECIAFOLDINE [Concomitant]
     Active Substance: FOLIC ACID
     Dosage: STRENGTH: 5 MG
     Route: 065

REACTIONS (13)
  - Thrombocytopenia [Recovered/Resolved]
  - Abdominal sepsis [Recovering/Resolving]
  - Bone marrow failure [Unknown]
  - Escherichia infection [Recovering/Resolving]
  - Pharyngitis [Unknown]
  - Haematemesis [Recovering/Resolving]
  - Melaena [Recovering/Resolving]
  - Infectious colitis [Recovering/Resolving]
  - Diverticulum intestinal [Unknown]
  - Neutropenia [Recovered/Resolved]
  - Leukopenia [Recovered/Resolved]
  - Candida infection [Recovering/Resolving]
  - Dysphagia [Recovering/Resolving]

NARRATIVE: CASE EVENT DATE: 201501
